FAERS Safety Report 9960123 (Version 2)
Quarter: 2014Q1

REPORT INFORMATION
  Report Type: Spontaneous
  Country: US (occurrence: US)
  Receive Date: 20140305
  Receipt Date: 20140305
  Transmission Date: 20141002
  Serious: Yes (Other)
  Sender: FDA-Public Use
  Company Number: US-ABBVIE-13P-163-1057554-00

PATIENT
  Age: 37 Year
  Sex: Female
  Weight: 109.87 kg

DRUGS (12)
  1. HUMIRA [Suspect]
     Indication: CROHN^S DISEASE
     Dates: start: 20121211, end: 20130228
  2. HUMIRA [Suspect]
     Dates: start: 20130320
  3. LISINOPRIL [Concomitant]
     Indication: BLOOD PRESSURE
  4. NORVASC [Concomitant]
     Indication: BLOOD PRESSURE
  5. FOLIC ACID [Concomitant]
     Indication: HORMONE THERAPY
  6. ZANAFLEX [Concomitant]
     Indication: PRODUCT USED FOR UNKNOWN INDICATION
  7. PERCOCET [Concomitant]
     Indication: PRODUCT USED FOR UNKNOWN INDICATION
  8. VITAMIN B 12 [Concomitant]
     Indication: CROHN^S DISEASE
     Route: 050
  9. B COMPLEX (B50) [Concomitant]
     Indication: PRODUCT USED FOR UNKNOWN INDICATION
     Route: 048
  10. AZASAN [Concomitant]
     Indication: CROHN^S DISEASE
     Dosage: 75 MG DAILY
  11. COUMADIN [Concomitant]
     Indication: PRODUCT USED FOR UNKNOWN INDICATION
  12. ESTRACE [Concomitant]
     Indication: HORMONE THERAPY

REACTIONS (4)
  - Pneumonia [Recovered/Resolved]
  - Dyspnoea [Unknown]
  - Pleuritic pain [Unknown]
  - Productive cough [Unknown]
